FAERS Safety Report 5372460-3 (Version None)
Quarter: 2007Q2

REPORT INFORMATION
  Report Type: 
  Country: None (occurrence: None)
  Receive Date: 20070625
  Receipt Date: 20070619
  Transmission Date: 20071010
  Serious: Yes (Death)
  Sender: FDA-Public Use
  Company Number: 163-20785-07051247

PATIENT
  Age: 67 Year
  Sex: Male

DRUGS (1)
  1. THALOMID [Suspect]
     Indication: MALIGNANT MELANOMA
     Dosage: 400 MG, 4 IN 1 D, ORAL
     Route: 048
     Dates: start: 20070110, end: 20070301

REACTIONS (4)
  - MALIGNANT MELANOMA [None]
  - MALIGNANT NEOPLASM PROGRESSION [None]
  - NEUROENDOCRINE CARCINOMA OF THE SKIN [None]
  - SKIN CANCER METASTATIC [None]
